FAERS Safety Report 16530653 (Version 8)
Quarter: 2022Q3

REPORT INFORMATION
  Report Type: Other
  Country: AT (occurrence: AT)
  Receive Date: 20190704
  Receipt Date: 20220715
  Transmission Date: 20221027
  Serious: Yes (Other)
  Sender: FDA-Public Use
  Company Number: AT-ROCHE-2346234

PATIENT
  Age: 61 Year
  Sex: Male
  Weight: 54 kg

DRUGS (9)
  1. EMICIZUMAB [Suspect]
     Active Substance: EMICIZUMAB
     Indication: Acquired haemophilia
     Dosage: 14/JUN/2018: 105 MG TOTAL 6 APPLICATIONS
     Route: 058
     Dates: start: 20180510, end: 20180614
  2. EMICIZUMAB [Suspect]
     Active Substance: EMICIZUMAB
     Route: 058
  3. EMICIZUMAB [Suspect]
     Active Substance: EMICIZUMAB
     Dosage: 2-4 WEEKS INTERVALS
     Route: 058
  4. RITUXIMAB [Suspect]
     Active Substance: RITUXIMAB
     Indication: Acquired haemophilia
     Dosage: 4 DOSES
     Route: 065
     Dates: start: 20180511, end: 20180525
  5. RITUXIMAB [Suspect]
     Active Substance: RITUXIMAB
     Indication: Immunosuppression
  6. PREDNISONE [Suspect]
     Active Substance: PREDNISONE
     Indication: Immunosuppression
     Route: 065
     Dates: start: 20180430, end: 20180614
  7. FEIBA [Concomitant]
     Active Substance: ANTI-INHIBITOR COAGULANT COMPLEX
     Indication: Acquired haemophilia
  8. COAGULATION FACTOR VIIA HUMAN [Concomitant]
     Active Substance: COAGULATION FACTOR VIIA HUMAN
     Indication: Acquired haemophilia
     Dates: start: 20180514
  9. HUMAN RED BLOOD CELL [Concomitant]
     Active Substance: HUMAN RED BLOOD CELL
     Indication: Acquired haemophilia

REACTIONS (2)
  - Neutropenic sepsis [Recovered/Resolved]
  - Off label use [Unknown]
